FAERS Safety Report 6573401-3 (Version None)
Quarter: 2010Q1

REPORT INFORMATION
  Report Type: 
  Country: None (occurrence: None)
  Receive Date: 20100208
  Receipt Date: 20100129
  Transmission Date: 20100710
  Serious: Yes (Other)
  Sender: FDA-Public Use
  Company Number: JP-PFIZER INC-2010014069

PATIENT
  Age: 62 Year
  Sex: Male
  Weight: 61.2 kg

DRUGS (5)
  1. SUNITINIB MALATE [Suspect]
     Indication: RENAL CELL CARCINOMA
     Dosage: 50 MG, 1X/DAY
     Route: 048
     Dates: start: 20090929, end: 20091001
  2. RIBOFLAVIN TETRABUTYRATE [Concomitant]
     Route: 048
     Dates: start: 20090929, end: 20091026
  3. PYDOXAL [Concomitant]
     Route: 048
     Dates: start: 20090929, end: 20091026
  4. PASTARON [Concomitant]
     Route: 062
     Dates: start: 20090929, end: 20091026
  5. OMEPRAL [Concomitant]
     Route: 048
     Dates: start: 20091010, end: 20091026

REACTIONS (5)
  - ALANINE AMINOTRANSFERASE INCREASED [None]
  - ASPARTATE AMINOTRANSFERASE INCREASED [None]
  - BLOOD ALKALINE PHOSPHATASE INCREASED [None]
  - HEPATIC FUNCTION ABNORMAL [None]
  - HYPERBILIRUBINAEMIA [None]
